FAERS Safety Report 10589772 (Version 1)
Quarter: 2014Q4

REPORT INFORMATION
  Report Type: Spontaneous
  Country: US (occurrence: None)
  Receive Date: 20141117
  Receipt Date: 20141117
  Transmission Date: 20150529
  Serious: Yes (Disabling)
  Sender: FDA-Public Use
  Company Number: None

PATIENT
  Age: 56 Year
  Sex: Female
  Weight: 63.5 kg

DRUGS (4)
  1. PROLIA [Suspect]
     Active Substance: DENOSUMAB
     Indication: OSTEOPOROSIS
     Dosage: 1 SHOT EVERY 6 MONTHS 2X YEARLY SHOT GIVEN EVERY 6 MONTHS BY DOCTOR
     Dates: start: 201210, end: 201310
  2. ADVIL [Concomitant]
     Active Substance: IBUPROFEN
  3. CALCIUM WITH VITAMIN D [Concomitant]
     Active Substance: CALCIUM\VITAMIN D
  4. SYNTHROID [Concomitant]
     Active Substance: LEVOTHYROXINE SODIUM

REACTIONS (9)
  - Blood calcium decreased [None]
  - Quality of life decreased [None]
  - Impaired work ability [None]
  - Cystitis [None]
  - Vitamin D decreased [None]
  - Sciatica [None]
  - Fall [None]
  - Tendon rupture [None]
  - Myalgia [None]

NARRATIVE: CASE EVENT DATE: 20121002
